FAERS Safety Report 7177422-1 (Version None)
Quarter: 2010Q4

REPORT INFORMATION
  Report Type: 
  Country: None (occurrence: None)
  Receive Date: 20101220
  Receipt Date: 20101206
  Transmission Date: 20110411
  Serious: Yes (Other)
  Sender: FDA-Public Use
  Company Number: PHHY2010JP63900

PATIENT
  Age: 59 Year
  Sex: Female

DRUGS (7)
  1. NEORAL [Suspect]
     Indication: APLASIA PURE RED CELL
     Dosage: 150 MG/DAY
     Route: 048
  2. NEORAL [Suspect]
     Dosage: UNK
     Route: 048
  3. RITUXIMAB [Concomitant]
     Dosage: UNK
  4. CYTOXAN [Concomitant]
     Dosage: UNK
  5. ADRIAMYCIN PFS [Concomitant]
     Dosage: UNK
  6. ONCOVIN [Concomitant]
     Dosage: UNK
  7. PREDNISONE [Concomitant]
     Dosage: UNK

REACTIONS (3)
  - ANAEMIA HAEMOLYTIC AUTOIMMUNE [None]
  - APLASIA PURE RED CELL [None]
  - HIRSUTISM [None]
